FAERS Safety Report 23864335 (Version 2)
Quarter: 2024Q2

REPORT INFORMATION
  Report Type: Spontaneous
  Country: GB (occurrence: GB)
  Receive Date: 20240516
  Receipt Date: 20240524
  Transmission Date: 20240716
  Serious: Yes (Hospitalization)
  Sender: FDA-Public Use
  Company Number: GB-MYLANLABS-2024M1043764

PATIENT
  Sex: Male
  Weight: 99.2 kg

DRUGS (7)
  1. CLOZARIL [Suspect]
     Active Substance: CLOZAPINE
     Indication: Schizophrenia
     Dosage: 325 MILLIGRAM (NOCTE)
     Route: 048
     Dates: start: 20120405
  2. OXYBUTYNIN [Concomitant]
     Active Substance: OXYBUTYNIN\OXYBUTYNIN CHLORIDE
     Indication: Urinary incontinence
     Dosage: 5 MILLIGRAM, BID
     Route: 048
     Dates: start: 20220801
  3. DOCUSATE [Concomitant]
     Active Substance: DOCUSATE
     Indication: Laxative supportive care
     Dosage: 100 MILLIGRAM (1 MANE, 2 NOCTE)
     Route: 048
     Dates: start: 20220606
  4. AMISULPRIDE [Concomitant]
     Active Substance: AMISULPRIDE
     Indication: Schizophrenia
     Dosage: 300 MILLIGRAM, BID
     Route: 048
     Dates: start: 20170627
  5. DIAZEPAM [Concomitant]
     Active Substance: DIAZEPAM
     Indication: Sedative therapy
     Dosage: 5 MILLIGRAM, BID
     Route: 048
     Dates: start: 20170504
  6. ATORVASTATIN [Concomitant]
     Active Substance: ATORVASTATIN
     Indication: Blood cholesterol
     Dosage: 10 MILLIGRAM (NOCTE)
     Route: 048
     Dates: start: 20150521
  7. PROPANTHELINE BROMIDE [Concomitant]
     Active Substance: PROPANTHELINE BROMIDE
     Indication: Urinary incontinence
     Dosage: 15 MILLIGRAM (TDS WITH ADDITIONAL NIGHT TIME 30MG DOSE)
     Route: 048

REACTIONS (2)
  - Hospitalisation [Unknown]
  - Treatment noncompliance [Unknown]
